FAERS Safety Report 23726236 (Version 1)
Quarter: 2024Q2

REPORT INFORMATION
  Report Type: Spontaneous
  Country: PL (occurrence: PL)
  Receive Date: 20240410
  Receipt Date: 20240410
  Transmission Date: 20240716
  Serious: Yes (Hospitalization)
  Sender: FDA-Public Use
  Company Number: PL-Accord-413895

PATIENT
  Age: 41 Year
  Sex: Male

DRUGS (8)
  1. ACETAMINOPHEN [Interacting]
     Active Substance: ACETAMINOPHEN
     Indication: Visceral pain
     Dosage: 1 GRAM, 3 TIMES A DAY
     Route: 065
  2. FENTANYL [Interacting]
     Active Substance: FENTANYL\FENTANYL CITRATE
     Indication: Visceral pain
     Dosage: 50 MICROGRAM/HOUR
     Route: 062
  3. FENTANYL [Interacting]
     Active Substance: FENTANYL\FENTANYL CITRATE
     Dosage: 100 MICROGRAM/HOUR
     Route: 062
  4. FENTANYL [Interacting]
     Active Substance: FENTANYL\FENTANYL CITRATE
     Dosage: 200 MICROGRAM (INTRANASAL)
     Route: 045
  5. BUTYLSCOPOLAMINE BROMIDE [Interacting]
     Active Substance: BUTYLSCOPOLAMINE BROMIDE
     Indication: Visceral pain
     Dosage: 10 MILLIGRAM, 3 TIMES A DAY
     Route: 048
  6. PREGABALIN [Interacting]
     Active Substance: PREGABALIN
     Indication: Visceral pain
     Dosage: 300 MILLIGRAM, TWO TIMES A DAY
     Route: 065
  7. SERTRALINE [Interacting]
     Active Substance: SERTRALINE HYDROCHLORIDE
     Indication: Insomnia
     Dosage: 50 MILLIGRAM, ONCE A DAY (IN THE MORNING)
     Route: 065
  8. MIANSERIN [Interacting]
     Active Substance: MIANSERIN
     Indication: Insomnia
     Dosage: 30 MILLIGRAM, ONCE A DAY (AT NIGHT)
     Route: 065

REACTIONS (3)
  - Hyperaesthesia [Recovering/Resolving]
  - Off label use [Unknown]
  - Drug interaction [Unknown]
